FAERS Safety Report 5223547-7 (Version None)
Quarter: 2007Q1

REPORT INFORMATION
  Report Type: 
  Country: None (occurrence: None)
  Receive Date: 20070125
  Receipt Date: 20070110
  Transmission Date: 20070707
  Serious: No
  Sender: FDA-Public Use
  Company Number: 094

PATIENT
  Sex: Female

DRUGS (1)
  1. FAZACLO ODT [Suspect]
     Indication: SCHIZOPHRENIA
     Dosage: 600 MG  PO DAILY
     Route: 048
     Dates: start: 20051005

REACTIONS (1)
  - CEREBROVASCULAR ACCIDENT [None]
